FAERS Safety Report 6992324-9 (Version None)
Quarter: 2010Q3

REPORT INFORMATION
  Report Type: 
  Country: None (occurrence: None)
  Receive Date: 20100917
  Receipt Date: 20100914
  Transmission Date: 20110219
  Serious: Yes (Life-Threatening)
  Sender: FDA-Public Use
  Company Number: AU-SANOFI-AVENTIS-2010SA055106

PATIENT
  Age: 47 Year
  Sex: Male

DRUGS (3)
  1. OXALIPLATIN [Suspect]
     Indication: PRODUCT USED FOR UNKNOWN INDICATION
  2. AVASTIN [Suspect]
     Indication: PRODUCT USED FOR UNKNOWN INDICATION
     Dates: start: 20100309, end: 20100309
  3. AVASTIN [Suspect]
     Dates: start: 20100713, end: 20100713

REACTIONS (1)
  - DUODENAL PERFORATION [None]
